FAERS Safety Report 22346512 (Version 3)
Quarter: 2023Q2

REPORT INFORMATION
  Report Type: Spontaneous
  Country: US (occurrence: None)
  Receive Date: 20230519
  Receipt Date: 20230630
  Transmission Date: 20230721
  Serious: No
  Sender: FDA-Public Use
  Company Number: 2023A115583

PATIENT
  Age: 3945 Week
  Sex: Male

DRUGS (1)
  1. BREZTRI [Suspect]
     Active Substance: BUDESONIDE\FORMOTEROL\GLYCOPYRROLATE
     Indication: Asthma
     Route: 055
     Dates: start: 20221101, end: 20230415

REACTIONS (6)
  - Product intolerance [Unknown]
  - Rash [Recovered/Resolved]
  - Eczema [Recovered/Resolved]
  - Hypersensitivity [Unknown]
  - Wrong technique in device usage process [Unknown]
  - Product use issue [Unknown]

NARRATIVE: CASE EVENT DATE: 20221215
